FAERS Safety Report 25513268 (Version 1)
Quarter: 2025Q3

REPORT INFORMATION
  Report Type: Spontaneous
  Country: US (occurrence: US)
  Receive Date: 20250703
  Receipt Date: 20250703
  Transmission Date: 20251021
  Serious: No
  Sender: RADIUS PHARM
  Company Number: US-RADIUS HEALTH INC.-2024US008623

PATIENT
  Age: 43 Year
  Sex: Female

DRUGS (1)
  1. TYMLOS [Suspect]
     Active Substance: ABALOPARATIDE
     Indication: Osteoporosis
     Dates: start: 2024

REACTIONS (7)
  - Heart rate increased [Not Recovered/Not Resolved]
  - Back pain [Recovering/Resolving]
  - Dizziness [Not Recovered/Not Resolved]
  - Product administered to patient of inappropriate age [Unknown]
  - Poor quality sleep [Unknown]
  - Headache [Unknown]
  - Nausea [Not Recovered/Not Resolved]

NARRATIVE: CASE EVENT DATE: 20240101
